FAERS Safety Report 7401735-9 (Version None)
Quarter: 2011Q2

REPORT INFORMATION
  Report Type: 
  Country: None (occurrence: None)
  Receive Date: 20110408
  Receipt Date: 20090726
  Transmission Date: 20111010
  Serious: Yes (Death, Other)
  Sender: FDA-Public Use
  Company Number: US-BAYER-200927708NA

PATIENT
  Sex: Female
  Weight: 54.875 kg

DRUGS (26)
  1. INSULIN [Concomitant]
     Route: 058
  2. PEPCID [Concomitant]
  3. LOPRESSOR [Concomitant]
  4. ALBUMIN (HUMAN) [Concomitant]
  5. ALBUTEROL [Concomitant]
     Dosage: 2 PUFF(S), BID
  6. DARVOCET [Concomitant]
  7. ZOFRAN [Concomitant]
  8. ANCEF [Concomitant]
     Dosage: 1 G, UNK
     Route: 042
  9. PLASMALYTE [GLUCOSE,POTASSIUM CHLORIDE] [Concomitant]
     Route: 042
  10. VANCOMYCIN [Concomitant]
     Dosage: 1 G, UNK
     Route: 042
  11. COMBIVENT [Concomitant]
     Dosage: UNK UNK, PRN
  12. MUCINEX [Concomitant]
     Dosage: 600 MG, PRN
     Route: 048
  13. TRASYLOL [Suspect]
     Indication: CORONARY ARTERY BYPASS
     Dosage: 200 ML, ONCE
     Route: 042
     Dates: start: 20040420, end: 20040420
  14. CELEBREX [Concomitant]
     Dosage: 200 MG, QD
     Route: 048
  15. MORPHINE [Concomitant]
     Dosage: UNK UNK, Q1HR
  16. TRANDATE [Concomitant]
  17. NITROGLYCERIN [Concomitant]
     Route: 042
  18. HEPARIN [Concomitant]
     Dosage: 4000 U, UNK
  19. MARCAINE [Concomitant]
     Dosage: 40 ML, UNK
  20. HISTINEX HC [Concomitant]
     Dosage: UNK UNK, PRN
     Route: 048
  21. KEFZOL [Concomitant]
     Dosage: 2 G, UNK
  22. TRASYLOL [Suspect]
     Dosage: 25 ML, Q1HR
     Route: 042
     Dates: start: 20040420, end: 20040420
  23. REGLAN [Concomitant]
  24. CONTRAST MEDIA [Suspect]
     Dosage: 160 ML, UNK
     Dates: start: 20040330
  25. XANAX [Concomitant]
     Dosage: 0.5 MG, BID
     Route: 048
  26. PROTAMINE SULFATE [Concomitant]

REACTIONS (9)
  - CARDIOGENIC SHOCK [None]
  - DEPRESSION [None]
  - ANXIETY [None]
  - PAIN [None]
  - CARDIAC FAILURE CONGESTIVE [None]
  - INJURY [None]
  - FEAR [None]
  - ANHEDONIA [None]
  - UNEVALUABLE EVENT [None]
